FAERS Safety Report 9243346 (Version 1)
Quarter: 2013Q2

REPORT INFORMATION
  Report Type: Report from Study
  Country: TR (occurrence: TR)
  Receive Date: 20130420
  Receipt Date: 20130420
  Transmission Date: 20140414
  Serious: Yes (Hospitalization)
  Sender: FDA-Public Use
  Company Number: TR-US-EMD SERONO, INC.-7205425

PATIENT
  Sex: Female
  Weight: 74 kg

DRUGS (2)
  1. REBIF [Suspect]
     Indication: RELAPSING-REMITTING MULTIPLE SCLEROSIS
     Route: 058
     Dates: start: 200805, end: 20121215
  2. BRUFEN [Suspect]
     Indication: HEADACHE
     Route: 048
     Dates: start: 200805, end: 20121215

REACTIONS (1)
  - Thyroid neoplasm [Recovering/Resolving]
